FAERS Safety Report 6302302-0 (Version None)
Quarter: 2009Q3

REPORT INFORMATION
  Report Type: 
  Country: None (occurrence: None)
  Receive Date: 20090810
  Receipt Date: 20090728
  Transmission Date: 20100115
  Serious: Yes (Other)
  Sender: FDA-Public Use
  Company Number: AU-PFIZER INC-2009249040

PATIENT
  Age: 72 Year

DRUGS (1)
  1. ZOLOFT [Suspect]
     Dosage: 50 MG, UNK

REACTIONS (3)
  - INSOMNIA [None]
  - MUSCLE TWITCHING [None]
  - RESTLESS LEGS SYNDROME [None]
